FAERS Safety Report 7216210-4 (Version None)
Quarter: 2011Q1

REPORT INFORMATION
  Report Type: 
  Country: None (occurrence: None)
  Receive Date: 20110107
  Receipt Date: 20101227
  Transmission Date: 20110831
  Serious: Yes (Hospitalization, Other)
  Sender: FDA-Public Use
  Company Number: US-ELI_LILLY_AND_COMPANY-US201009002943

PATIENT
  Sex: Male

DRUGS (8)
  1. EFFIENT [Suspect]
     Indication: STENT PLACEMENT
     Dosage: 5 MG, DAILY (1/D)
     Dates: start: 20091215
  2. LIPITOR [Concomitant]
     Dosage: UNK, DAILY (1/D)
  3. PLAVIX [Concomitant]
  4. BETA BLOCKING AGENTS [Concomitant]
     Dosage: 5 MG, UNK
  5. SYMBICORT [Concomitant]
     Dosage: 1 D/F, 2/D
     Route: 055
  6. BYSTOLIC [Concomitant]
     Dosage: 2.5 MG, DAILY (1/D)
  7. ASPIRIN [Concomitant]
     Dosage: 325 MG, DAILY (1/D)
  8. VENTOLIN [Concomitant]
     Dosage: UNK, AS NEEDED

REACTIONS (4)
  - ISCHAEMIC STROKE [None]
  - ANGINA UNSTABLE [None]
  - OFF LABEL USE [None]
  - HEMIPLEGIA [None]
